FAERS Safety Report 9275228 (Version 2)
Quarter: 2013Q2

REPORT INFORMATION
  Report Type: Report from Study
  Country: BR (occurrence: BR)
  Receive Date: 20130507
  Receipt Date: 20130508
  Transmission Date: 20140414
  Serious: Yes (Other)
  Sender: FDA-Public Use
  Company Number: BR-ROCHE-1219568

PATIENT
  Sex: 0
  Weight: 68 kg

DRUGS (6)
  1. OMALIZUMAB [Suspect]
     Indication: ASTHMA
     Dosage: 2 AMPOULES PER MONTH
     Route: 065
     Dates: start: 201207
  2. METFORMIN [Concomitant]
     Route: 065
  3. RIVOTRIL [Concomitant]
     Route: 065
  4. AMLODIPINE [Concomitant]
     Route: 065
  5. ENALAPRIL [Concomitant]
     Route: 065
  6. ALENIA (BRAZIL) [Concomitant]

REACTIONS (17)
  - Diabetes mellitus [Recovering/Resolving]
  - Depression [Recovering/Resolving]
  - Dysentery [Recovering/Resolving]
  - Chest pain [Recovering/Resolving]
  - Pain [Recovering/Resolving]
  - Social fear [Recovering/Resolving]
  - Speech disorder [Recovering/Resolving]
  - Insomnia [Recovering/Resolving]
  - Feeling abnormal [Recovering/Resolving]
  - Dizziness [Recovering/Resolving]
  - Blood pressure abnormal [Recovering/Resolving]
  - Tremor [Recovering/Resolving]
  - Agitation [Unknown]
  - Cough [Recovering/Resolving]
  - Arthralgia [Recovering/Resolving]
  - Bronchospasm [Recovering/Resolving]
  - Drug ineffective [Recovering/Resolving]
